FAERS Safety Report 4680711-3 (Version None)
Quarter: 2005Q2

REPORT INFORMATION
  Report Type: 
  Country: None (occurrence: None)
  Receive Date: 20050601
  Receipt Date: 20050525
  Transmission Date: 20051028
  Serious: Yes (Death)
  Sender: FDA-Public Use
  Company Number: 2005076926

PATIENT
  Age: 79 Year
  Sex: Male

DRUGS (5)
  1. CARDURA [Suspect]
     Indication: BENIGN PROSTATIC HYPERPLASIA
     Dosage: 4 MG (4 MG, 1 IN 1 D), ORAL
     Route: 048
     Dates: start: 20021001, end: 20050312
  2. LIPITOR [Concomitant]
  3. ENALAPRIL MALEATE AND HYDROCHLOROTHIAZIDE [Concomitant]
  4. ISORDIL [Concomitant]
  5. ACETYLSALICYLIC ACID + ISOSORBIDE [Concomitant]

REACTIONS (1)
  - MYOCARDIAL INFARCTION [None]
